FAERS Safety Report 4929612-3 (Version None)
Quarter: 2006Q1

REPORT INFORMATION
  Report Type: 
  Country: None (occurrence: None)
  Receive Date: 20060223
  Receipt Date: 20060209
  Transmission Date: 20060701
  Serious: Yes (Other)
  Sender: FDA-Public Use
  Company Number: 2005S1000176

PATIENT
  Age: 39 Year
  Sex: Female
  Weight: 70 kg

DRUGS (11)
  1. CUBICIN [Suspect]
     Indication: ENDOCARDITIS
     Dosage: 4 MG/KG; Q24H; IV
     Route: 042
     Dates: start: 20050809, end: 20050809
  2. CUBICIN [Suspect]
     Indication: STREPTOCOCCAL INFECTION
     Dosage: 4 MG/KG; Q24H; IV
     Route: 042
     Dates: start: 20050809, end: 20050809
  3. CEFEPIME [Suspect]
     Indication: ENDOCARDITIS
     Dates: end: 20050809
  4. CEFEPIME [Suspect]
     Indication: STREPTOCOCCAL INFECTION
     Dates: end: 20050809
  5. ZYVOX [Suspect]
     Dates: end: 20050812
  6. DIFLUCAN [Suspect]
     Dates: end: 20050812
  7. VANCOMYCIN [Concomitant]
  8. CEFEPIME [Concomitant]
  9. HYDROCORTISONE [Concomitant]
  10. CLINDAMYCIN [Concomitant]
  11. EPINEPHRINE [Concomitant]

REACTIONS (8)
  - ANGIONEUROTIC OEDEMA [None]
  - BLISTER [None]
  - DRUG RASH WITH EOSINOPHILIA AND SYSTEMIC SYMPTOMS [None]
  - LEUKOCYTOSIS [None]
  - LIVER FUNCTION TEST ABNORMAL [None]
  - PRURITUS [None]
  - SODIUM RETENTION [None]
  - SWELLING FACE [None]
